FAERS Safety Report 8570570-0 (Version None)
Quarter: 2012Q3

REPORT INFORMATION
  Report Type: 
  Country: None (occurrence: None)
  Receive Date: 20120804
  Receipt Date: 20120705
  Transmission Date: 20120928
  Serious: No
  Sender: FDA-Public Use
  Company Number: US-009507513-1207USA003040

PATIENT

DRUGS (4)
  1. PEGASYS [Suspect]
     Dosage: 180 MICROGRAM, UNK
     Route: 058
     Dates: start: 20120320, end: 20120701
  2. REBETOL [Suspect]
     Dosage: 400 MG, QPM
     Dates: start: 20120320, end: 20120701
  3. VICTRELIS [Suspect]
     Indication: HEPATITIS C
     Dosage: 800 MG, TID
     Route: 048
     Dates: start: 20120624, end: 20120701
  4. REBETOL [Suspect]
     Dosage: 600 MG, QAM
     Dates: start: 20120320, end: 20120701

REACTIONS (5)
  - HEADACHE [None]
  - NAUSEA [None]
  - VOMITING [None]
  - DIARRHOEA [None]
  - ALOPECIA [None]
